FAERS Safety Report 8534925-2 (Version None)
Quarter: 2012Q3

REPORT INFORMATION
  Report Type: 
  Country: None (occurrence: None)
  Receive Date: 20120724
  Receipt Date: 20120723
  Transmission Date: 20120928
  Serious: Yes (Hospitalization)
  Sender: FDA-Public Use
  Company Number: GB-ROCHE-1046430

PATIENT
  Age: 53 Year
  Sex: Male
  Weight: 127.8 kg

DRUGS (5)
  1. PENICILLIN [Concomitant]
     Dates: start: 20111001
  2. DOVOBET [Concomitant]
     Dosage: 1 APP
     Dates: start: 20110501
  3. BETNOVATE [Concomitant]
     Dosage: 3 APP
     Dates: start: 19900101
  4. OMEPRAZOLE [Concomitant]
     Dates: start: 20120225
  5. VEMURAFENIB [Suspect]
     Indication: MALIGNANT MELANOMA
     Dosage: THE LAST DOSE PRIOR TO SAE:06/JUL/2012
     Route: 048
     Dates: start: 20120228, end: 20120706

REACTIONS (2)
  - PYREXIA [None]
  - ANAEMIA [None]
